FAERS Safety Report 8218049-X (Version None)
Quarter: 2012Q1

REPORT INFORMATION
  Report Type: 
  Country: None (occurrence: None)
  Receive Date: 20120316
  Receipt Date: 20120316
  Transmission Date: 20120608
  Serious: No
  Sender: FDA-Public Use
  Company Number: None

PATIENT
  Sex: Female
  Weight: 68.0396 kg

DRUGS (2)
  1. TIZANIDINE HCL [Suspect]
     Dosage: 1 TAB TID PO
     Route: 048
     Dates: start: 20120123
  2. TRAMADOL HCL [Suspect]
     Indication: SCIATICA
     Dosage: 1 TAB Q4HOURS PRN PO
     Route: 048
     Dates: start: 20120107

REACTIONS (1)
  - DRUG INEFFECTIVE [None]
